FAERS Safety Report 18478810 (Version 2)
Quarter: 2020Q4

REPORT INFORMATION
  Report Type: Spontaneous
  Country: US (occurrence: US)
  Receive Date: 20201109
  Receipt Date: 20201123
  Transmission Date: 20210114
  Serious: No
  Sender: FDA-Public Use
  Company Number: US-AMGEN INC.-USASP2020179053

PATIENT
  Age: 49 Year
  Sex: Female

DRUGS (2)
  1. AIMOVIG [Suspect]
     Active Substance: ERENUMAB-AOOE
     Dosage: 140 MILLIGRAM, QMO (EVERY 30 DAYS)
     Route: 065
  2. AIMOVIG [Suspect]
     Active Substance: ERENUMAB-AOOE
     Indication: MIGRAINE PROPHYLAXIS
     Dosage: 140 MILLIGRAM, QMO (EVERY 30 DAYS)
     Route: 065
     Dates: start: 20190909

REACTIONS (4)
  - Wrong technique in product usage process [Unknown]
  - Therapeutic response shortened [Unknown]
  - Injection site pain [Unknown]
  - Medication overuse headache [Not Recovered/Not Resolved]

NARRATIVE: CASE EVENT DATE: 2020
